FAERS Safety Report 8315461-5 (Version None)
Quarter: 2012Q2

REPORT INFORMATION
  Report Type: 
  Country: None (occurrence: None)
  Receive Date: 20120426
  Receipt Date: 20120420
  Transmission Date: 20120825
  Serious: Yes (Other)
  Sender: FDA-Public Use
  Company Number: US-PFIZER INC-2012101088

PATIENT
  Sex: Female
  Weight: 52.15 kg

DRUGS (5)
  1. CELEBREX [Suspect]
     Indication: ARTHRITIS
     Dosage: 100 MG, 1X/DAY
     Route: 048
     Dates: end: 20111001
  2. WARFARIN SODIUM [Suspect]
     Indication: POSTOPERATIVE CARE
     Dosage: ORAL TABLET ONCE A DAY
     Route: 048
     Dates: start: 20111001, end: 20111001
  3. ZOLOFT [Concomitant]
     Dosage: UNK
  4. NORVASC [Concomitant]
     Dosage: UNK
  5. LIPITOR [Concomitant]
     Dosage: UNK

REACTIONS (5)
  - FEMUR FRACTURE [None]
  - RECTAL HAEMORRHAGE [None]
  - MOUTH HAEMORRHAGE [None]
  - HAEMOGLOBIN ABNORMAL [None]
  - FALL [None]
